FAERS Safety Report 6619404-1 (Version None)
Quarter: 2010Q1

REPORT INFORMATION
  Report Type: 
  Country: None (occurrence: None)
  Receive Date: 20100309
  Receipt Date: 20100301
  Transmission Date: 20100710
  Serious: Yes (Hospitalization)
  Sender: FDA-Public Use
  Company Number: US-BIOGENIDEC-2010BI003070

PATIENT
  Age: 66 Year
  Sex: Female
  Weight: 90 kg

DRUGS (2)
  1. AVONEX [Suspect]
     Indication: MULTIPLE SCLEROSIS
     Route: 030
     Dates: start: 20091015, end: 20091101
  2. AVONEX [Suspect]
     Route: 030
     Dates: start: 20091101

REACTIONS (1)
  - PNEUMONIA [None]
